FAERS Safety Report 5225811-4 (Version None)
Quarter: 2007Q1

REPORT INFORMATION
  Report Type: 
  Country: None (occurrence: None)
  Receive Date: 20070201
  Receipt Date: 20070111
  Transmission Date: 20070707
  Serious: Yes (Other)
  Sender: FDA-Public Use
  Company Number: LB-SHR-LB-2007-001291

PATIENT
  Age: 66 Year
  Sex: Male

DRUGS (2)
  1. FLUDARA [Suspect]
     Dosage: 30 MG/M2, CYCLES X 3D EVERY 28D
     Dates: start: 20000701, end: 20001201
  2. CYCLOPHOSPHAMIDE [Suspect]
     Dosage: 300 MG/M2, CYCLES X 3D EVERY 28D
     Dates: start: 20000701, end: 20001201

REACTIONS (3)
  - ACUTE MYELOID LEUKAEMIA [None]
  - LEUKOPENIA [None]
  - PANCYTOPENIA [None]
